FAERS Safety Report 9433107 (Version 2)
Quarter: 2013Q3

REPORT INFORMATION
  Report Type: Spontaneous
  Country: US (occurrence: US)
  Receive Date: 20130731
  Receipt Date: 20130802
  Transmission Date: 20140515
  Serious: Yes (Hospitalization)
  Sender: FDA-Public Use
  Company Number: US-BAXTER-2013BAX029839

PATIENT
  Age: 75 Year
  Sex: Female

DRUGS (5)
  1. DIANEAL LOW CALCIUM [Suspect]
     Indication: PERITONEAL DIALYSIS
     Route: 033
     Dates: start: 20120312
  2. DIANEAL LOW CALCIUM [Suspect]
     Route: 033
     Dates: start: 20120312
  3. DIANEAL LOW CALCIUM [Suspect]
     Indication: PERITONEAL DIALYSIS
     Route: 033
     Dates: start: 20120312
  4. DIANEAL LOW CALCIUM [Suspect]
     Route: 033
     Dates: start: 20120312
  5. EXTRANEAL [Suspect]
     Indication: PERITONEAL DIALYSIS
     Route: 033

REACTIONS (3)
  - Abdominal infection [Unknown]
  - Peritonitis [Recovering/Resolving]
  - Peritoneal dialysis complication [Unknown]
